FAERS Safety Report 10743578 (Version 1)
Quarter: 2015Q1

REPORT INFORMATION
  Report Type: Spontaneous
  Country: DK (occurrence: DK)
  Receive Date: 20150128
  Receipt Date: 20150128
  Transmission Date: 20150721
  Serious: Yes (Hospitalization)
  Sender: FDA-Public Use
  Company Number: PHHY2015DK007251

PATIENT
  Sex: Female
  Weight: 83 kg

DRUGS (2)
  1. PERATSIN [Suspect]
     Active Substance: PERPHENAZINE
     Indication: SCHIZOPHRENIA
     Dosage: UNK
     Route: 065
     Dates: start: 20140415
  2. SERTRALINE [Suspect]
     Active Substance: SERTRALINE HYDROCHLORIDE
     Indication: DEPRESSION
     Dosage: UNK
     Route: 065
     Dates: start: 20080701

REACTIONS (5)
  - Exposure during pregnancy [Recovered/Resolved]
  - Psychotic disorder [Unknown]
  - Maternal exposure during pregnancy [None]
  - Abortion spontaneous [Not Recovered/Not Resolved]
  - Pregnancy [None]
